FAERS Safety Report 24981841 (Version 1)
Quarter: 2025Q1

REPORT INFORMATION
  Report Type: Spontaneous
  Country: US (occurrence: None)
  Receive Date: 20250217
  Receipt Date: 20250217
  Transmission Date: 20250409
  Serious: No
  Sender: FDA-CTU
  Company Number: None

PATIENT

DRUGS (1)
  1. CARDENE [Suspect]
     Active Substance: NICARDIPINE HYDROCHLORIDE

REACTIONS (3)
  - Device malfunction [None]
  - Incorrect drug administration rate [None]
  - Hypotension [None]

NARRATIVE: CASE EVENT DATE: 20250214
